FAERS Safety Report 5075705-2 (Version None)
Quarter: 2006Q3

REPORT INFORMATION
  Report Type: 
  Country: None (occurrence: None)
  Receive Date: 20060804
  Receipt Date: 20060731
  Transmission Date: 20061208
  Serious: Yes (Hospitalization)
  Sender: FDA-Public Use
  Company Number: HQWYE542131JUL06

PATIENT
  Sex: Male

DRUGS (11)
  1. AMIODARONE HCL [Suspect]
     Dosage: 200 MG 1X PER 1 DAY ORAL
     Route: 048
  2. WARFARIN SODIUM [Concomitant]
  3. DIGOXIN [Concomitant]
  4. LASIX [Concomitant]
  5. ALDACTONE [Concomitant]
  6. PANALDINE      (TICLOPIDINE HYROCHLORIDE) [Concomitant]
  7. FAMOTIDINE [Concomitant]
  8. ISOSORBIDE MONONITRATE [Concomitant]
  9. SENNA (SENNA) [Concomitant]
  10. MAGNESIUM OXIDE  (MAGNESIUM OXIDE) [Concomitant]
  11. PRAVASTATIN [Concomitant]

REACTIONS (2)
  - MELAENA [None]
  - PANCYTOPENIA [None]
